FAERS Safety Report 5241857-4 (Version None)
Quarter: 2007Q1

REPORT INFORMATION
  Report Type: 
  Country: None (occurrence: None)
  Receive Date: 20070220
  Receipt Date: 20070208
  Transmission Date: 20070707
  Serious: Yes (Other)
  Sender: FDA-Public Use
  Company Number: US-PFIZER INC-2006142711

PATIENT
  Sex: Male
  Weight: 80.7 kg

DRUGS (3)
  1. LYRICA [Suspect]
     Indication: CERVICOBRACHIAL SYNDROME
     Route: 048
     Dates: start: 20061003, end: 20061007
  2. CARBIDOPA AND LEVODOPA [Concomitant]
  3. MIRAPEX [Concomitant]

REACTIONS (3)
  - ALCOHOLISM [None]
  - ANGER [None]
  - DEPRESSION [None]
